FAERS Safety Report 8321733-0 (Version None)
Quarter: 2012Q2

REPORT INFORMATION
  Report Type: 
  Country: None (occurrence: None)
  Receive Date: 20120426
  Receipt Date: 20120327
  Transmission Date: 20120825
  Serious: Yes (Death)
  Sender: FDA-Public Use
  Company Number: 215468

PATIENT

DRUGS (2)
  1. INNOHEP [Suspect]
  2. WARFARIN SODIUM [Suspect]
     Route: 048

REACTIONS (2)
  - RETROPERITONEAL HAEMORRHAGE [None]
  - DRUG INTERACTION [None]
